FAERS Safety Report 24278762 (Version 1)
Quarter: 2024Q3

REPORT INFORMATION
  Report Type: Spontaneous
  Country: US (occurrence: US)
  Receive Date: 20240903
  Receipt Date: 20240903
  Transmission Date: 20241016
  Serious: No
  Sender: MYLAN
  Company Number: US-MYLANLABS-2024M1077346

PATIENT
  Sex: Male
  Weight: 92.99 kg

DRUGS (1)
  1. BREYNA [Suspect]
     Active Substance: BUDESONIDE\FORMOTEROL FUMARATE
     Indication: Dyspnoea
     Dosage: 160/4.5 MICROGRAM, BID (TWO PUFF TWICE A DAY)
     Route: 048

REACTIONS (2)
  - Feeling abnormal [Unknown]
  - Device issue [Unknown]
